FAERS Safety Report 17670499 (Version 1)
Quarter: 2020Q2

REPORT INFORMATION
  Report Type: Spontaneous
  Country: DE (occurrence: DE)
  Receive Date: 20200415
  Receipt Date: 20200415
  Transmission Date: 20200713
  Serious: Yes (Other)
  Sender: FDA-Public Use
  Company Number: NVSC2020DE099934

PATIENT

DRUGS (1)
  1. METHYLPREDNISOLONE. [Suspect]
     Active Substance: METHYLPREDNISOLONE
     Indication: PLEOCYTOSIS
     Dosage: 1000 MG, QD
     Route: 065

REACTIONS (3)
  - Optic neuritis [Unknown]
  - Product use in unapproved indication [Unknown]
  - Multiple sclerosis [Unknown]
